FAERS Safety Report 4803354-7 (Version None)
Quarter: 2005Q4

REPORT INFORMATION
  Report Type: 
  Country: None (occurrence: None)
  Receive Date: 20051019
  Receipt Date: 20051013
  Transmission Date: 20060501
  Serious: Yes (Hospitalization)
  Sender: FDA-Public Use
  Company Number: PHRM2005FR02726

PATIENT
  Age: 67 Year
  Sex: Male
  Weight: 78 kg

DRUGS (4)
  1. TRILEPTAL [Suspect]
     Indication: FRONTAL LOBE EPILEPSY
     Dosage: 1.2 G DAILY
     Route: 048
     Dates: start: 20050315, end: 20050910
  2. LAMICTAL [Concomitant]
     Indication: FRONTAL LOBE EPILEPSY
     Dosage: 200 MG DAILY
     Route: 048
     Dates: start: 20050115
  3. TEMESTA [Concomitant]
     Indication: ANXIETY
     Dosage: 1 MG DAILY
     Route: 048
  4. DI-ANTALVIC [Concomitant]
     Indication: ARTHRALGIA
     Route: 048

REACTIONS (2)
  - ATRIOVENTRICULAR BLOCK COMPLETE [None]
  - EPILEPSY [None]
